FAERS Safety Report 16707202 (Version 1)
Quarter: 2019Q3

REPORT INFORMATION
  Report Type: Report from Study
  Country: DE (occurrence: DE)
  Receive Date: 20190815
  Receipt Date: 20190815
  Transmission Date: 20191004
  Serious: Yes (Hospitalization)
  Sender: FDA-Public Use
  Company Number: DE-PFIZER INC-2019344252

PATIENT
  Age: 77 Year
  Sex: Female
  Weight: 65 kg

DRUGS (14)
  1. PACLITAXEL. [Suspect]
     Active Substance: PACLITAXEL
     Indication: OVARIAN CANCER
     Dosage: 280 MG, UNK
     Route: 065
     Dates: start: 20120404
  2. PACLITAXEL. [Suspect]
     Active Substance: PACLITAXEL
     Dosage: 280 MG, UNK
     Route: 065
     Dates: start: 20120424
  3. BEVACIZUMAB. [Suspect]
     Active Substance: BEVACIZUMAB
     Indication: OVARIAN CANCER
     Dosage: 1000 MG, UNK
     Route: 042
     Dates: start: 20120807
  4. PACLITAXEL. [Suspect]
     Active Substance: PACLITAXEL
     Dosage: 280 MG, UNK
     Route: 065
     Dates: start: 20120515
  5. PACLITAXEL. [Suspect]
     Active Substance: PACLITAXEL
     Dosage: 280 MG, UNK
     Route: 065
     Dates: start: 20120605
  6. CARBOPLATIN. [Suspect]
     Active Substance: CARBOPLATIN
     Indication: OVARIAN CANCER
     Dosage: 600 MG, UNK
     Route: 065
     Dates: start: 20120605
  7. CARBOPLATIN. [Suspect]
     Active Substance: CARBOPLATIN
     Dosage: 600 MG, UNK
     Route: 065
     Dates: start: 20120424
  8. CARBOPLATIN. [Suspect]
     Active Substance: CARBOPLATIN
     Dosage: 600 MG, UNK
     Route: 065
     Dates: start: 20120626
  9. PACLITAXEL. [Suspect]
     Active Substance: PACLITAXEL
     Dosage: 280 MG, UNK
     Route: 065
     Dates: start: 20120313
  10. CARBOPLATIN. [Suspect]
     Active Substance: CARBOPLATIN
     Dosage: 600 MG, UNK
     Route: 065
     Dates: start: 20120404
  11. CARBOPLATIN. [Suspect]
     Active Substance: CARBOPLATIN
     Dosage: 600 MG, UNK
     Route: 065
     Dates: start: 20120313
  12. BEVACIZUMAB. [Suspect]
     Active Substance: BEVACIZUMAB
     Dosage: 970 MG, UNK
     Route: 042
     Dates: start: 20120313
  13. PACLITAXEL. [Suspect]
     Active Substance: PACLITAXEL
     Dosage: 280 MG, UNK
     Route: 065
     Dates: start: 20120626
  14. CARBOPLATIN. [Suspect]
     Active Substance: CARBOPLATIN
     Dosage: 600 MG, UNK
     Route: 065
     Dates: start: 20120515

REACTIONS (1)
  - Ascites [Unknown]

NARRATIVE: CASE EVENT DATE: 20120824
